FAERS Safety Report 10102606 (Version 2)
Quarter: 2014Q2

REPORT INFORMATION
  Report Type: Report from Study
  Country: US (occurrence: US)
  Receive Date: 20140424
  Receipt Date: 20140424
  Transmission Date: 20141212
  Serious: Yes (Life-Threatening, Hospitalization, Other)
  Sender: FDA-Public Use
  Company Number: US-SA-2014SA036392

PATIENT
  Age: 74 Year
  Sex: Female
  Weight: 64 kg

DRUGS (7)
  1. ELOXATIN [Suspect]
     Indication: ADENOCARCINOMA OF COLON
     Route: 042
     Dates: start: 20131016
  2. LEUCOVORIN CALCIUM [Suspect]
     Indication: ADENOCARCINOMA OF COLON
     Route: 042
     Dates: start: 20131016
  3. FLUOROURACIL [Suspect]
     Indication: ADENOCARCINOMA OF COLON
     Dosage: ROUTE: IVP (INTRAVENOUS PUSH)
     Dates: start: 20131016
  4. PLACEBO [Suspect]
     Indication: ADENOCARCINOMA OF COLON
     Dosage: STOP DATE: 18 DEC 2013 (DATE NOT CONFIRMED)
     Route: 048
     Dates: start: 20131030
  5. DEXAMETHASONE [Concomitant]
  6. ZOFRAN [Concomitant]
  7. PROCHLORPERAZINE MALEATE [Concomitant]

REACTIONS (5)
  - Sepsis [Unknown]
  - Respiratory failure [Unknown]
  - Cholecystitis [Unknown]
  - Hypoxia [Unknown]
  - Neutrophil count decreased [Not Recovered/Not Resolved]
